FAERS Safety Report 13929040 (Version 1)
Quarter: 2017Q3

REPORT INFORMATION
  Report Type: Report from Study
  Country: None (occurrence: BR)
  Receive Date: 20170901
  Receipt Date: 20170901
  Transmission Date: 20171127
  Serious: Yes (Death, Hospitalization, Disabling)
  Sender: FDA-Public Use
  Company Number: BR-ABBVIE-17K-020-2086762-00

PATIENT
  Sex: Female

DRUGS (1)
  1. HUMIRA [Suspect]
     Active Substance: ADALIMUMAB
     Indication: RHEUMATOID ARTHRITIS
     Route: 058
     Dates: start: 20170317, end: 201705

REACTIONS (5)
  - Dysstasia [Unknown]
  - Cholecystitis [Not Recovered/Not Resolved]
  - Sepsis [Fatal]
  - Pyrexia [Recovered/Resolved]
  - Gallbladder perforation [Fatal]

NARRATIVE: CASE EVENT DATE: 2017
